FAERS Safety Report 17451950 (Version 6)
Quarter: 2021Q2

REPORT INFORMATION
  Report Type: Spontaneous
  Country: JP (occurrence: JP)
  Receive Date: 20200224
  Receipt Date: 20210513
  Transmission Date: 20210716
  Serious: Yes (Life-Threatening, Hospitalization)
  Sender: FDA-Public Use
  Company Number: JP-PFIZER INC-2020077702

PATIENT
  Age: 38 Year
  Sex: Female

DRUGS (2)
  1. MEDROXYPROGESTERONE ACETATE. [Suspect]
     Active Substance: MEDROXYPROGESTERONE ACETATE
     Indication: ENDOMETRIAL CANCER
  2. MEDROXYPROGESTERONE ACETATE. [Suspect]
     Active Substance: MEDROXYPROGESTERONE ACETATE
     Indication: OOCYTE HARVEST
     Dosage: HIGH?DOSE PROGESTERONE THERAPY

REACTIONS (3)
  - Second primary malignancy [Recovered/Resolved]
  - Ovarian cancer [Recovered/Resolved]
  - Off label use [Recovered/Resolved]
